FAERS Safety Report 8912500 (Version 2)
Quarter: 2014Q1

REPORT INFORMATION
  Report Type: Spontaneous
  Country: US (occurrence: US)
  Receive Date: 20121116
  Receipt Date: 20140103
  Transmission Date: 20141002
  Serious: No
  Sender: FDA-Public Use
  Company Number: US-009507513-1210USA009502

PATIENT
  Sex: Male

DRUGS (4)
  1. PROPECIA [Suspect]
     Indication: ALOPECIA
     Dosage: 1 MG, QD
     Route: 048
     Dates: start: 20000508, end: 20070917
  2. PROSCAR [Suspect]
     Dosage: 5 MG, QD
     Route: 048
  3. FINASTERIDE [Suspect]
     Indication: ALOPECIA
     Dosage: 1 MG, UNK
     Dates: start: 20000508, end: 20070917
  4. FINASTERIDE [Suspect]
     Dosage: 5 MG, UNK
     Dates: start: 20000508, end: 20070917

REACTIONS (5)
  - Cognitive disorder [Not Recovered/Not Resolved]
  - Sexual dysfunction [Not Recovered/Not Resolved]
  - Erectile dysfunction [Unknown]
  - Depression [Unknown]
  - Libido decreased [Unknown]
